FAERS Safety Report 17441319 (Version 1)
Quarter: 2020Q1

REPORT INFORMATION
  Report Type: Spontaneous
  Country: US (occurrence: US)
  Receive Date: 20200220
  Receipt Date: 20200220
  Transmission Date: 20200409
  Serious: No
  Sender: FDA-Public Use
  Company Number: US-VERTEX PHARMACEUTICALS-2019-012552

PATIENT
  Sex: Female

DRUGS (2)
  1. SYMDEKO [Suspect]
     Active Substance: IVACAFTOR\TEZACAFTOR
     Indication: CYSTIC FIBROSIS
     Dosage: 100/150 MG (UNKNOWN FREQUENCY)
     Route: 048
  2. SYMDEKO [Interacting]
     Active Substance: IVACAFTOR\TEZACAFTOR
     Dosage: REDUCED DOSE ()ON MONDAY AND THURSDAY
     Route: 048

REACTIONS (1)
  - Drug ineffective [Unknown]
